FAERS Safety Report 22068340 (Version 1)
Quarter: 2023Q1

REPORT INFORMATION
  Report Type: Spontaneous
  Country: US (occurrence: US)
  Receive Date: 20230307
  Receipt Date: 20230307
  Transmission Date: 20230418
  Serious: No
  Sender: FDA-Public Use
  Company Number: US-GBT-020514

PATIENT
  Age: 22 Year
  Sex: Female

DRUGS (1)
  1. OXBRYTA [Suspect]
     Active Substance: VOXELOTOR
     Indication: Product used for unknown indication
     Route: 048
     Dates: end: 20230222

REACTIONS (6)
  - Swelling face [Unknown]
  - Therapy cessation [Unknown]
  - Hypoaesthesia [Unknown]
  - Anxiety [Unknown]
  - Rash erythematous [Unknown]
  - Pyrexia [Unknown]

NARRATIVE: CASE EVENT DATE: 20230219
